FAERS Safety Report 14244264 (Version 1)
Quarter: 2017Q4

REPORT INFORMATION
  Report Type: Spontaneous
  Country: JP (occurrence: JP)
  Receive Date: 20171201
  Receipt Date: 20171201
  Transmission Date: 20180321
  Serious: Yes (Other)
  Sender: FDA-Public Use
  Company Number: JP-PFIZER INC-2017504217

PATIENT
  Age: 53 Year
  Sex: Male

DRUGS (4)
  1. MERCAZOLE [Concomitant]
     Active Substance: CARBIMAZOLE
     Indication: HYPERTHYROIDISM
     Dosage: UNK
     Route: 048
  2. TROXSIN [Concomitant]
     Active Substance: TROXIPIDE
     Dosage: 100 MG, UNK
     Route: 048
  3. LYRICA [Suspect]
     Active Substance: PREGABALIN
     Indication: NEURALGIA
     Dosage: 450 MG, 1X/DAY AT BEDTIME
     Route: 048
     Dates: start: 20171114
  4. ZALTOPROFEN [Concomitant]
     Active Substance: ZALTOPROFEN
     Dosage: 80 MG, UNK
     Route: 048

REACTIONS (3)
  - Blood pressure systolic increased [Unknown]
  - Weight increased [Unknown]
  - Product use issue [Unknown]
